FAERS Safety Report 7519566-8 (Version None)
Quarter: 2011Q2

REPORT INFORMATION
  Report Type: 
  Country: None (occurrence: None)
  Receive Date: 20110602
  Receipt Date: 20110527
  Transmission Date: 20111010
  Serious: Yes (Other)
  Sender: FDA-Public Use
  Company Number: US-PERRIGO-11US004233

PATIENT
  Sex: Male

DRUGS (2)
  1. ASPIRIN [Suspect]
     Dosage: UNK DOSE FOR YEARS
     Route: 048
  2. ASPIRIN [Suspect]
     Indication: PRODUCT USED FOR UNKNOWN INDICATION
     Dosage: 325 MG, SINGLE
     Route: 048
     Dates: start: 20110515, end: 20110515

REACTIONS (3)
  - HAEMORRHAGE [None]
  - HAEMATEMESIS [None]
  - ABDOMINAL PAIN UPPER [None]
